FAERS Safety Report 18112504 (Version 1)
Quarter: 2020Q3

REPORT INFORMATION
  Report Type: Spontaneous
  Country: US (occurrence: US)
  Receive Date: 20200805
  Receipt Date: 20200805
  Transmission Date: 20201103
  Serious: No
  Sender: FDA-Public Use
  Company Number: US-ASTRAZENECA-2020SE87475

PATIENT
  Sex: Female
  Weight: 81.6 kg

DRUGS (3)
  1. THYROID MEDICATIO [Concomitant]
     Route: 065
  2. ASPIRIN. [Concomitant]
     Active Substance: ASPIRIN
     Route: 048
  3. BRILINTA [Suspect]
     Active Substance: TICAGRELOR
     Indication: STENT PLACEMENT
     Route: 048
     Dates: start: 201806

REACTIONS (2)
  - Tendonitis [Unknown]
  - Ligament rupture [Unknown]
